FAERS Safety Report 10247169 (Version 1)
Quarter: 2014Q2

REPORT INFORMATION
  Report Type: Spontaneous
  Country: GB (occurrence: None)
  Receive Date: 20140617
  Receipt Date: 20140617
  Transmission Date: 20141212
  Serious: Yes (Life-Threatening, Disabling, Other)
  Sender: FDA-Public Use
  Company Number: AUR-APL-2014-06332

PATIENT
  Age: 58 Year
  Sex: Male
  Weight: 85 kg

DRUGS (8)
  1. SIMVASTATIN 40MG (SIMVASTATIN) UNKNOWN, 40MG [Suspect]
     Indication: HYPERCHOLESTEROLAEMIA
     Route: 048
     Dates: start: 20090801, end: 20130901
  2. ASPIRIN (ACETYLSALICYLIC ACID) [Concomitant]
  3. BISOPROLOL (BISOPROLOL) [Concomitant]
  4. CETIRIZINE HYDROCHLORIDE (CETIRIZINE HYDROCHLORIDE) [Concomitant]
  5. NICORANDIL (NICORANDIL) [Concomitant]
  6. PANTOPRAZOLE (PANTOPRAZOLE) [Concomitant]
  7. RAMIPRIL (RAMIPRIL) [Concomitant]
  8. SOLIFENACIN SUCCINATE (SOLIFENACIN SUCCINATE) [Concomitant]

REACTIONS (8)
  - Abdominal pain [None]
  - Depression [None]
  - Pruritus [None]
  - Lethargy [None]
  - Psychiatric symptom [None]
  - Myalgia [None]
  - Suicidal ideation [None]
  - Fatigue [None]
